FAERS Safety Report 6324401-X (Version None)
Quarter: 2009Q3

REPORT INFORMATION
  Report Type: 
  Country: None (occurrence: None)
  Receive Date: 20090824
  Receipt Date: 20090428
  Transmission Date: 20100115
  Serious: No
  Sender: FDA-Public Use
  Company Number: US-ABBOTT-09P-163-0570603-00

PATIENT
  Sex: Male
  Weight: 86.26 kg

DRUGS (3)
  1. NIASPAN [Suspect]
     Indication: HIGH DENSITY LIPOPROTEIN DECREASED
     Route: 048
     Dates: start: 20090413
  2. DIOVAN HCT [Concomitant]
     Indication: HYPERTENSION
     Dosage: 320/25 MG QD
     Route: 048
  3. TRICOR [Concomitant]
     Indication: BLOOD TRIGLYCERIDES INCREASED
     Route: 048

REACTIONS (3)
  - FLUSHING [None]
  - NAUSEA [None]
  - VERTIGO [None]
